FAERS Safety Report 4407092-4 (Version None)
Quarter: 2004Q3

REPORT INFORMATION
  Report Type: 
  Country: None (occurrence: None)
  Receive Date: 20040721
  Receipt Date: 20040706
  Transmission Date: 20050211
  Serious: Yes (Other)
  Sender: FDA-Public Use
  Company Number: US_0403101870

PATIENT
  Age: 71 Year
  Sex: Female
  Weight: 55 kg

DRUGS (6)
  1. EVISTA [Suspect]
     Indication: OSTEOPOROSIS
     Dosage: 60 MG DAY
     Dates: start: 20030311
  2. FOSAMAX [Concomitant]
  3. CALCIUM WITH VITAMIN D [Concomitant]
  4. BEXTRA [Concomitant]
  5. AVALIDE [Concomitant]
  6. M.V.I. [Concomitant]

REACTIONS (6)
  - ANAEMIA POSTOPERATIVE [None]
  - ANKLE FRACTURE [None]
  - BONE DENSITY DECREASED [None]
  - FALL [None]
  - MALNUTRITION [None]
  - WHEELCHAIR USER [None]
